FAERS Safety Report 24155247 (Version 1)
Quarter: 2024Q3

REPORT INFORMATION
  Report Type: Spontaneous
  Country: JP (occurrence: JP)
  Receive Date: 20240731
  Receipt Date: 20240731
  Transmission Date: 20241016
  Serious: Yes (Other)
  Sender: SANDOZ
  Company Number: JP-SANDOZ-SDZ2024JP069105

PATIENT
  Age: 89 Year
  Sex: Female

DRUGS (1)
  1. RECLAST [Suspect]
     Active Substance: ZOLEDRONIC ACID
     Indication: Product used for unknown indication
     Dosage: 5 MG IN 1 YEAR (INJECTION)
     Route: 041

REACTIONS (3)
  - Osteoma [Not Recovered/Not Resolved]
  - Metastases to bone [Not Recovered/Not Resolved]
  - Neoplasm malignant [Unknown]
